FAERS Safety Report 8817029 (Version 1)
Quarter: 2012Q4

REPORT INFORMATION
  Report Type: Spontaneous
  Country: US (occurrence: None)
  Receive Date: 20121003
  Receipt Date: 20121003
  Transmission Date: 20130627
  Serious: Yes (Life-Threatening, Hospitalization)
  Sender: FDA-Public Use
  Company Number: None

PATIENT
  Age: 84 Year
  Sex: Male
  Weight: 84 kg

DRUGS (2)
  1. ENOXAPARIN [Suspect]
     Indication: ATRIAL FIBRILLATION
     Dosage: 80mg, twice a day, sq
     Route: 058
     Dates: start: 20120624, end: 20120703
  2. WARFARIN [Suspect]
     Indication: DVT
     Route: 048
     Dates: start: 20120624, end: 20120703

REACTIONS (2)
  - Pelvic haematoma [None]
  - Dysuria [None]
